FAERS Safety Report 9041571 (Version 1)
Quarter: 2013Q1

REPORT INFORMATION
  Report Type: Report from Study
  Country: US (occurrence: US)
  Receive Date: 20130129
  Receipt Date: 20130129
  Transmission Date: 20140127
  Serious: No
  Sender: FDA-Public Use
  Company Number: US-ABBOTT-12P-163-0904137-00

PATIENT
  Age: 19 Year
  Sex: Female

DRUGS (5)
  1. HUMIRA 40 MG/0.8 ML PEN [Suspect]
     Indication: COLITIS ULCERATIVE
     Dates: start: 20110211, end: 201108
  2. HUMIRA 40 MG/0.8 ML PEN [Suspect]
     Dates: start: 201108
  3. TOPAMAX [Concomitant]
     Indication: MIGRAINE PROPHYLAXIS
  4. LIALDA [Concomitant]
     Indication: COLITIS
  5. NITROFURANTOIN MONO [Concomitant]
     Indication: PRODUCT USED FOR UNKNOWN INDICATION
     Dosage: FOR 2 WEEKS
     Dates: start: 201202

REACTIONS (4)
  - Dizziness [Not Recovered/Not Resolved]
  - Dizziness [Not Recovered/Not Resolved]
  - Inner ear disorder [Not Recovered/Not Resolved]
  - Urinary tract infection [Unknown]
